FAERS Safety Report 13863933 (Version 3)
Quarter: 2017Q3

REPORT INFORMATION
  Report Type: Spontaneous
  Country: IL (occurrence: IL)
  Receive Date: 20170814
  Receipt Date: 20170922
  Transmission Date: 20171127
  Serious: Yes (Other)
  Sender: FDA-Public Use
  Company Number: IL-SUN PHARMACEUTICAL INDUSTRIES LTD-2017RR-147430

PATIENT
  Age: 91 Year
  Sex: Male

DRUGS (1)
  1. MINOCYCLINE [Suspect]
     Active Substance: MINOCYCLINE\MINOCYCLINE HYDROCHLORIDE
     Indication: PEMPHIGOID
     Dosage: 200 MG, DAILY
     Route: 065

REACTIONS (2)
  - Chylothorax [Recovered/Resolved]
  - Systemic lupus erythematosus [Recovering/Resolving]
